FAERS Safety Report 16705395 (Version 1)
Quarter: 2019Q3

REPORT INFORMATION
  Report Type: Spontaneous
  Country: US (occurrence: US)
  Receive Date: 20190815
  Receipt Date: 20190815
  Transmission Date: 20191004
  Serious: No
  Sender: FDA-Public Use
  Company Number: US-009507513-1907USA011869

PATIENT
  Age: 43 Year

DRUGS (1)
  1. NOXAFIL [Suspect]
     Active Substance: POSACONAZOLE
     Indication: BALAMUTHIA INFECTION
     Route: 048

REACTIONS (1)
  - Product use in unapproved indication [Unknown]
